FAERS Safety Report 9144138 (Version 8)
Quarter: 2016Q4

REPORT INFORMATION
  Report Type: Report from Study
  Country: BR (occurrence: BR)
  Receive Date: 20130306
  Receipt Date: 20161228
  Transmission Date: 20170207
  Serious: Yes (Hospitalization, Disabling, Other)
  Sender: FDA-Public Use
  Company Number: BR-ROCHE-1083016

PATIENT
  Age: 47 Year
  Sex: Female
  Weight: 72 kg

DRUGS (30)
  1. INDAPEN [Concomitant]
     Active Substance: INDAPAMIDE
     Route: 065
  2. OMEPRAZOL [Concomitant]
     Active Substance: OMEPRAZOLE
     Indication: DEPRESSION
     Route: 065
  3. DEPAKENE [Concomitant]
     Active Substance: VALPROIC ACID
     Route: 065
  4. MELOXICAM. [Concomitant]
     Active Substance: MELOXICAM
     Indication: FIBROMYALGIA
  5. GLIFAGE [Concomitant]
     Active Substance: METFORMIN HYDROCHLORIDE
     Indication: DIABETES MELLITUS
     Route: 065
  6. MABTHERA [Suspect]
     Active Substance: RITUXIMAB
     Indication: RHEUMATOID ARTHRITIS
     Route: 042
     Dates: start: 201008
  7. DIAZEPAM. [Concomitant]
     Active Substance: DIAZEPAM
     Route: 065
  8. CORTISONE [Concomitant]
     Active Substance: CORTISONE\HYDROCORTISONE
     Indication: PREMEDICATION
  9. MABTHERA [Suspect]
     Active Substance: RITUXIMAB
     Route: 042
     Dates: start: 20150910
  10. OMEPRAZOL [Concomitant]
     Active Substance: OMEPRAZOLE
     Indication: ANXIETY
  11. PREDSIM [Concomitant]
     Active Substance: PREDNISOLONE
     Route: 065
  12. CLONAZEPAM. [Concomitant]
     Active Substance: CLONAZEPAM
     Indication: DEPRESSION
     Route: 065
  13. SIMVASTATIN. [Concomitant]
     Active Substance: SIMVASTATIN
     Indication: BLOOD CHOLESTEROL ABNORMAL
     Route: 065
  14. MABTHERA [Suspect]
     Active Substance: RITUXIMAB
     Indication: SYSTEMIC LUPUS ERYTHEMATOSUS
     Route: 042
     Dates: start: 201101
  15. METFORMIN [Concomitant]
     Active Substance: METFORMIN HYDROCHLORIDE
     Indication: DIABETES MELLITUS
     Route: 065
  16. CYCLOBENZAPRINE [Concomitant]
     Active Substance: CYCLOBENZAPRINE
     Indication: FIBROMYALGIA
     Route: 065
  17. ALLEGRA [Concomitant]
     Active Substance: FEXOFENADINE HYDROCHLORIDE
     Indication: PREMEDICATION
  18. CLONAZEPAM. [Concomitant]
     Active Substance: CLONAZEPAM
     Indication: ANXIETY
  19. FLUOXETINE [Concomitant]
     Active Substance: FLUOXETINE HYDROCHLORIDE
     Route: 065
  20. QUETIAPINE. [Concomitant]
     Active Substance: QUETIAPINE
     Route: 065
  21. PREDNISONE. [Concomitant]
     Active Substance: PREDNISONE
     Route: 065
  22. VONAU [Concomitant]
     Active Substance: ONDANSETRON HYDROCHLORIDE
     Indication: NAUSEA
  23. ATENOLOL. [Concomitant]
     Active Substance: ATENOLOL
     Indication: HYPERTENSION
     Route: 065
  24. OMEPRAZOL [Concomitant]
     Active Substance: OMEPRAZOLE
     Indication: GASTRIC DISORDER
  25. ATENOLOL. [Concomitant]
     Active Substance: ATENOLOL
     Route: 065
  26. RIVOTRIL [Concomitant]
     Active Substance: CLONAZEPAM
     Route: 065
  27. BROMOPRIDE [Concomitant]
     Active Substance: BROMOPRIDE
     Dosage: 40 DROPS DAILY
     Route: 065
  28. COLCHICINE. [Concomitant]
     Active Substance: COLCHICINE
  29. TECNOMET [Concomitant]
     Active Substance: METHOTREXATE
     Route: 065
  30. MABTHERA [Suspect]
     Active Substance: RITUXIMAB
     Route: 042
     Dates: start: 201107

REACTIONS (15)
  - Furuncle [Not Recovered/Not Resolved]
  - Muscular weakness [Recovering/Resolving]
  - Choking sensation [Recovered/Resolved]
  - Leiomyoma [Not Recovered/Not Resolved]
  - Pain in extremity [Recovering/Resolving]
  - Formication [Unknown]
  - Headache [Not Recovered/Not Resolved]
  - Haematuria [Recovering/Resolving]
  - Renal cyst [Not Recovered/Not Resolved]
  - Influenza [Unknown]
  - Nephrolithiasis [Unknown]
  - Hepatic neoplasm [Unknown]
  - Headache [Unknown]
  - Nephrocalcinosis [Not Recovered/Not Resolved]
  - Hepatic function abnormal [Not Recovered/Not Resolved]

NARRATIVE: CASE EVENT DATE: 20120602
